FAERS Safety Report 11061438 (Version 1)
Quarter: 2015Q2

REPORT INFORMATION
  Report Type: Spontaneous
  Country: US (occurrence: None)
  Receive Date: 20150423
  Receipt Date: 20150423
  Transmission Date: 20150821
  Serious: No
  Sender: FDA-Public Use
  Company Number: None

PATIENT
  Age: 58 Year
  Sex: Female
  Weight: 53.52 kg

DRUGS (14)
  1. FLONASE [Concomitant]
     Active Substance: FLUTICASONE PROPIONATE
  2. EFFEXOR [Concomitant]
     Active Substance: VENLAFAXINE HYDROCHLORIDE
  3. ZYRTEC [Concomitant]
     Active Substance: CETIRIZINE HYDROCHLORIDE
  4. MAXALT-MLT [Concomitant]
     Active Substance: RIZATRIPTAN BENZOATE
  5. SYNTHROID [Concomitant]
     Active Substance: LEVOTHYROXINE SODIUM
  6. MAG OZIDE [Concomitant]
  7. POTASSIUM [Concomitant]
     Active Substance: POTASSIUM
  8. CRESTOR [Concomitant]
     Active Substance: ROSUVASTATIN CALCIUM
  9. GINGER ROOT TABLETS [Concomitant]
  10. RIZATRIPTAN BENZOATE. [Suspect]
     Active Substance: RIZATRIPTAN BENZOATE
     Indication: MIGRAINE
     Dosage: 1 TABLET, UNDER THE TONGUE
     Dates: start: 20150306, end: 20150409
  11. BENTYL [Concomitant]
     Active Substance: DICYCLOMINE HYDROCHLORIDE
  12. VITAMIN B12 [Concomitant]
     Active Substance: CYANOCOBALAMIN
  13. DILTIAZEM [Concomitant]
     Active Substance: DILTIAZEM
  14. IRON INFUSIONS [Concomitant]

REACTIONS (7)
  - Nausea [None]
  - Dizziness [None]
  - Hypoaesthesia [None]
  - Nervous system disorder [None]
  - Dyspnoea [None]
  - Loss of consciousness [None]
  - Confusional state [None]

NARRATIVE: CASE EVENT DATE: 20150409
